FAERS Safety Report 9409760 (Version 4)
Quarter: 2013Q4

REPORT INFORMATION
  Report Type: Spontaneous
  Country: HU (occurrence: HU)
  Receive Date: 20130719
  Receipt Date: 20131217
  Transmission Date: 20140711
  Serious: Yes (Other)
  Sender: FDA-Public Use
  Company Number: HU-ELI_LILLY_AND_COMPANY-HU201303008352

PATIENT
  Age: 38 Year
  Sex: Female

DRUGS (4)
  1. ZYPADHERA [Suspect]
     Dosage: 300 MG, 2/M (EVERY TWO WEEKS)
     Route: 030
     Dates: start: 2010, end: 201301
  2. ZYPADHERA [Suspect]
     Dosage: 210 MG (DURING THE BEGINNING OF PREGNANCY), OTHER (EVERY TWO WEEKS)
     Route: 030
     Dates: start: 201301, end: 20130530
  3. OLANZAPINE [Suspect]
     Indication: SCHIZOPHRENIA
     Dosage: 15 MG, QD
     Route: 048
     Dates: start: 20130531, end: 20131007
  4. OLANZAPINE [Suspect]
     Dosage: 2 MG, UNK
     Route: 048
     Dates: start: 2013

REACTIONS (6)
  - Bacterial toxaemia [Recovered/Resolved]
  - Hypertension [Recovered/Resolved]
  - Pre-eclampsia [Recovered/Resolved]
  - Exposure during pregnancy [Recovered/Resolved]
  - Haemorrhage in pregnancy [Recovered/Resolved]
  - Gestational diabetes [Not Recovered/Not Resolved]
